FAERS Safety Report 4351186-9 (Version None)
Quarter: 2004Q2

REPORT INFORMATION
  Report Type: 
  Country: None (occurrence: None)
  Receive Date: 20040428
  Receipt Date: 20031120
  Transmission Date: 20050107
  Serious: Yes (Other)
  Sender: FDA-Public Use
  Company Number: US-JNJFOC-20031104569

PATIENT
  Age: 43 Year
  Sex: Female
  Weight: 90.7194 kg

DRUGS (8)
  1. ULTRAM [Suspect]
     Indication: ARTHRALGIA
     Dosage: 50 MG
     Dates: end: 20030701
  2. CELEXA [Suspect]
     Indication: DRUG USE FOR UNKNOWN INDICATION
     Dosage: 20 MG
  3. LOREZAPAM (LORAZEPAM) [Concomitant]
  4. MULTIVITAMIN [Concomitant]
  5. HORMONE REPLACEMENT THERAPY (ANDROGENS AND FEMALE SEX HORMONES IN COMB [Concomitant]
  6. INDOMETHACIN [Concomitant]
  7. LASIX [Concomitant]
  8. MAXALT [Concomitant]

REACTIONS (10)
  - ALOPECIA [None]
  - AMNESIA [None]
  - BURNING SENSATION [None]
  - DRUG INTERACTION [None]
  - FATIGUE [None]
  - INTRACRANIAL PRESSURE INCREASED [None]
  - NAIL DISCOLOURATION [None]
  - RESPIRATORY DEPRESSION [None]
  - SKIN HYPERTROPHY [None]
  - URINARY INCONTINENCE [None]
